FAERS Safety Report 8196725-5 (Version None)
Quarter: 2012Q1

REPORT INFORMATION
  Report Type: 
  Country: None (occurrence: None)
  Receive Date: 20120309
  Receipt Date: 20120302
  Transmission Date: 20120608
  Serious: Yes (Other)
  Sender: FDA-Public Use
  Company Number: PHHY2011DE102939

PATIENT
  Sex: Female
  Weight: 80 kg

DRUGS (5)
  1. PHYSIOTHERAPY [Concomitant]
     Indication: GAIT DISTURBANCE
     Dosage: UNK UKN, UNK
     Dates: start: 20090101
  2. VENLAFAXINE [Concomitant]
     Dosage: UNK UKN, UNK
     Dates: start: 20091123
  3. GILENYA [Suspect]
     Indication: MULTIPLE SCLEROSIS
     Dosage: 0.5 MG, QD
     Route: 048
     Dates: start: 20111024
  4. TOPIRAMATE [Concomitant]
     Dosage: 50 MG, UNK
     Dates: start: 20110801
  5. SPASMEX [Concomitant]
     Indication: DYSURIA
     Dosage: 1 DF, QD
     Route: 048
     Dates: start: 20081201

REACTIONS (2)
  - PAIN IN EXTREMITY [None]
  - DYSAESTHESIA [None]
